FAERS Safety Report 16427322 (Version 2)
Quarter: 2019Q2

REPORT INFORMATION
  Report Type: Spontaneous
  Country: UA (occurrence: UA)
  Receive Date: 20190613
  Receipt Date: 20190621
  Transmission Date: 20190711
  Serious: Yes (Death, Other)
  Sender: FDA-Public Use
  Company Number: PHHY2019UA135192

PATIENT
  Age: 52 Year
  Sex: Male

DRUGS (9)
  1. AZITHROMYCIN ANHYDROUS. [Suspect]
     Active Substance: AZITHROMYCIN ANHYDROUS
     Indication: PNEUMONIA
     Dosage: UNK
     Route: 065
  2. MEXIDOL [Suspect]
     Active Substance: EMOXYPINE SUCCINATE
     Indication: PNEUMONIA
     Dosage: UNK
     Route: 065
  3. DIHYDROQUERCETIN [Suspect]
     Active Substance: TAXIFOLIN, (+/-)-
     Indication: PNEUMONIA
     Dosage: UNK
     Route: 065
  4. AMOXIL [Suspect]
     Active Substance: AMOXICILLIN
     Indication: PNEUMONIA
     Dosage: UNK
     Route: 065
  5. AMOKSIKLAV [Suspect]
     Active Substance: AMOXICILLIN\CLAVULANATE POTASSIUM
     Indication: PNEUMONIA
     Dosage: UNK
     Route: 065
  6. CEFAXON [CEFTRIAXONE SODIUM] [Suspect]
     Active Substance: CEFTRIAXONE SODIUM
     Indication: PNEUMONIA
     Dosage: UNK
     Route: 065
  7. ALFA-TOCOFEROL [Suspect]
     Active Substance: .ALPHA.-TOCOPHEROL
     Indication: PNEUMONIA
     Dosage: UNK
     Route: 065
  8. MELDONIUM [Suspect]
     Active Substance: MELDONIUM
     Indication: PNEUMONIA
     Dosage: UNK
     Route: 065
  9. PROBUCOLUM [Suspect]
     Active Substance: PROBUCOL
     Indication: PNEUMONIA
     Dosage: UNK
     Route: 065

REACTIONS (2)
  - Pulmonary necrosis [Unknown]
  - Pneumonia [Fatal]
